FAERS Safety Report 20812631 (Version 2)
Quarter: 2022Q2

REPORT INFORMATION
  Report Type: Spontaneous
  Country: US (occurrence: US)
  Receive Date: 20220511
  Receipt Date: 20220609
  Transmission Date: 20220721
  Serious: Yes (Hospitalization, Other)
  Sender: FDA-Public Use
  Company Number: US-AUROBINDO-AUR-APL-2022-015660

PATIENT
  Age: 81 Year
  Sex: Male

DRUGS (3)
  1. LIDOCAINE HYDROCHLORIDE [Suspect]
     Active Substance: LIDOCAINE HYDROCHLORIDE
     Indication: Arthropathy
     Dosage: UNK
     Route: 065
  2. HYALURONATE SODIUM [Suspect]
     Active Substance: HYALURONATE SODIUM
     Indication: Arthropathy
     Route: 065
  3. OMNIPAQUE [Suspect]
     Active Substance: IOHEXOL
     Indication: Arthropathy
     Route: 065

REACTIONS (2)
  - Arthritis infective [Recovering/Resolving]
  - Product sterility issue [Unknown]

NARRATIVE: CASE EVENT DATE: 20220328
